FAERS Safety Report 13551659 (Version 10)
Quarter: 2020Q1

REPORT INFORMATION
  Report Type: Spontaneous
  Country: CA (occurrence: CA)
  Receive Date: 20170516
  Receipt Date: 20200127
  Transmission Date: 20200409
  Serious: Yes (Hospitalization)
  Sender: FDA-Public Use
  Company Number: CA-ACTELION-A-NJ2017-153759

PATIENT
  Age: 71 Year
  Sex: Female

DRUGS (10)
  1. ALDACTONE [Concomitant]
     Active Substance: SPIRONOLACTONE
  2. UPTRAVI [Suspect]
     Active Substance: SELEXIPAG
     Indication: PULMONARY ARTERIAL HYPERTENSION
     Dosage: 400 MCG AM, 200 MCG AT LUNCH, 400 MCG AT HS
     Route: 048
  3. PREVACID [Concomitant]
     Active Substance: LANSOPRAZOLE
  4. UPTRAVI [Suspect]
     Active Substance: SELEXIPAG
     Dosage: 200 MCG, BID
     Route: 048
     Dates: start: 20161107
  5. POTASSIUM [Concomitant]
     Active Substance: POTASSIUM
  6. OPSUMIT [Suspect]
     Active Substance: MACITENTAN
     Indication: PULMONARY ARTERIAL HYPERTENSION
     Dosage: 10 MG, QD
     Route: 048
     Dates: start: 20140801
  7. UPTRAVI [Suspect]
     Active Substance: SELEXIPAG
     Dosage: 400 MCG, BID
     Route: 048
  8. LASIX [Concomitant]
     Active Substance: FUROSEMIDE
  9. VENTOLIN [Concomitant]
     Active Substance: ALBUTEROL SULFATE
     Route: 045
  10. ADEMPAS [Concomitant]
     Active Substance: RIOCIGUAT

REACTIONS (17)
  - Transfusion [Recovering/Resolving]
  - Irritable bowel syndrome [Recovering/Resolving]
  - Upper gastrointestinal haemorrhage [Unknown]
  - Fatigue [Recovering/Resolving]
  - Asthenia [Recovering/Resolving]
  - Face oedema [Recovered/Resolved]
  - Fluid retention [Not Recovered/Not Resolved]
  - Dizziness [Not Recovered/Not Resolved]
  - Syncope [Recovered/Resolved]
  - Cardiac disorder [Recovered/Resolved]
  - Epistaxis [Recovered/Resolved]
  - Myocardial infarction [Recovering/Resolving]
  - Haemoglobin decreased [Recovering/Resolving]
  - Oedema peripheral [Recovering/Resolving]
  - Pneumonia [Recovering/Resolving]
  - Lethargy [Not Recovered/Not Resolved]
  - Nasopharyngitis [Recovering/Resolving]

NARRATIVE: CASE EVENT DATE: 20170401
